FAERS Safety Report 4615516-2 (Version None)
Quarter: 2005Q1

REPORT INFORMATION
  Report Type: 
  Country: None (occurrence: None)
  Receive Date: 20050317
  Receipt Date: 20020823
  Transmission Date: 20050727
  Serious: Yes (Death)
  Sender: FDA-Public Use
  Company Number: S02-SWI-01841-01

PATIENT
  Age: 81 Year
  Sex: Male

DRUGS (12)
  1. SEROPRAM (CITALOPRAM) [Suspect]
     Indication: DEPRESSION
     Dosage: 20 MG QD PO
     Route: 048
  2. LINEZOLID [Suspect]
     Indication: STAPHYLOCOCCAL INFECTION
     Dosage: 1200 MG QD PO
     Route: 048
     Dates: start: 20020623, end: 20020716
  3. OXAZEPAM [Concomitant]
  4. DIGOXIN [Concomitant]
  5. TOREM (TORASEMIDE) [Concomitant]
  6. NITRODERM [Concomitant]
  7. PREDNISONE [Concomitant]
  8. METHOTREXATE [Concomitant]
  9. INSULATARD (INSULIN HUMAN INJECTION, ISOPHANE0 [Concomitant]
  10. INSULIN ACTRAPID HUMAN (INSULIN HUMAN) [Concomitant]
  11. ACETAMINOPHEN [Concomitant]
  12. NIZORAL [Concomitant]

REACTIONS (9)
  - ANAEMIA [None]
  - CARDIO-RESPIRATORY ARREST [None]
  - CONFUSIONAL STATE [None]
  - HYPERTENSION [None]
  - MENINGITIS [None]
  - RENAL FAILURE CHRONIC [None]
  - SEROTONIN SYNDROME [None]
  - SOMNOLENCE [None]
  - THROMBOCYTOPENIA [None]
